FAERS Safety Report 8393280-1 (Version None)
Quarter: 2012Q2

REPORT INFORMATION
  Report Type: 
  Country: None (occurrence: None)
  Receive Date: 20120529
  Receipt Date: 20120514
  Transmission Date: 20120825
  Serious: Yes (Hospitalization)
  Sender: FDA-Public Use
  Company Number: DE-ROCHE-1071806

PATIENT
  Age: 28 Year
  Sex: Female
  Weight: 56 kg

DRUGS (3)
  1. XOLAIR [Suspect]
     Indication: ASTHMA
     Dates: start: 20091001
  2. XOLAIR [Suspect]
     Route: 058
     Dates: start: 20101003, end: 20101101
  3. XOLAIR [Suspect]
     Dates: start: 20120508

REACTIONS (4)
  - EXPOSURE DURING BREAST FEEDING [None]
  - PREMATURE LABOUR [None]
  - HELLP SYNDROME [None]
  - MATERNAL EXPOSURE DURING PREGNANCY [None]
